FAERS Safety Report 15979890 (Version 1)
Quarter: 2019Q1

REPORT INFORMATION
  Report Type: Spontaneous
  Country: NL (occurrence: NL)
  Receive Date: 20190219
  Receipt Date: 20190219
  Transmission Date: 20190418
  Serious: Yes (Hospitalization)
  Sender: FDA-Public Use
  Company Number: NL-ACCORD-108121

PATIENT
  Age: 29 Year
  Sex: Female
  Weight: 70 kg

DRUGS (4)
  1. XANAX [Concomitant]
     Active Substance: ALPRAZOLAM
  2. TOPIRAMATE ACCORD [Suspect]
     Active Substance: TOPIRAMATE
     Indication: NIGHTMARE
     Dosage: 1X3 PIECES, FILM-COATED TABLET 25 MG
     Dates: start: 20120809
  3. NORTRILEN [Concomitant]
     Active Substance: NORTRIPTYLINE
  4. DIPIPERON [Concomitant]
     Active Substance: PIPAMPERONE

REACTIONS (7)
  - Psychotic disorder [Recovered/Resolved]
  - Suicidal ideation [Recovered/Resolved]
  - Memory impairment [Recovered/Resolved]
  - Feeling hot [Recovered/Resolved]
  - Mood swings [Recovered/Resolved]
  - Paranoia [Recovered/Resolved]
  - Paraesthesia [Recovered/Resolved]

NARRATIVE: CASE EVENT DATE: 20120809
